FAERS Safety Report 6725493-6 (Version None)
Quarter: 2010Q2

REPORT INFORMATION
  Report Type: 
  Country: None (occurrence: None)
  Receive Date: 20100513
  Receipt Date: 20100513
  Transmission Date: 20101027
  Serious: Yes (Hospitalization)
  Sender: FDA-Public Use
  Company Number: None

PATIENT
  Age: 64 Year
  Sex: Male

DRUGS (2)
  1. DRITHO-CREAM SUMMERS LAB. INC [Suspect]
     Indication: PSORIASIS
     Dosage: 1 X DAILY 1
     Dates: start: 20100412
  2. DRITHO-CREAM SUMMERS LAB. INC [Suspect]
     Indication: PSORIASIS
     Dosage: 1 X DAILY 1
     Dates: start: 20100413

REACTIONS (4)
  - APPLICATION SITE ERYTHEMA [None]
  - APPLICATION SITE VESICLES [None]
  - CAUSTIC INJURY [None]
  - CHEMICAL BURN OF SKIN [None]
